FAERS Safety Report 17268701 (Version 1)
Quarter: 2020Q1

REPORT INFORMATION
  Report Type: Spontaneous
  Country: US (occurrence: US)
  Receive Date: 20200114
  Receipt Date: 20200114
  Transmission Date: 20200409
  Serious: Yes (Life-Threatening, Hospitalization)
  Sender: FDA-Public Use
  Company Number: None

PATIENT
  Age: 79 Year
  Sex: Male

DRUGS (1)
  1. WARFARIN [Suspect]
     Active Substance: WARFARIN

REACTIONS (5)
  - Haematemesis [None]
  - Gastrointestinal disorder [None]
  - Melaena [None]
  - Faeces discoloured [None]
  - Thrombosis [None]

NARRATIVE: CASE EVENT DATE: 20190519
